FAERS Safety Report 9552538 (Version 1)
Quarter: 2013Q3

REPORT INFORMATION
  Report Type: Spontaneous
  Country: US (occurrence: US)
  Receive Date: 20130925
  Receipt Date: 20130925
  Transmission Date: 20140515
  Serious: No
  Sender: FDA-Public Use
  Company Number: US-PFIZER INC-2013269948

PATIENT
  Sex: Female

DRUGS (4)
  1. DETROL LA [Suspect]
     Dosage: UNK
  2. PREMARIN [Suspect]
     Dosage: UNK
  3. LIPITOR [Suspect]
     Dosage: UNK
  4. LOPID [Suspect]
     Dosage: UNK

REACTIONS (9)
  - Arthritis [Unknown]
  - Insomnia [Unknown]
  - Pain [Unknown]
  - Restless legs syndrome [Unknown]
  - Nervousness [Unknown]
  - Feeling jittery [Unknown]
  - Muscle spasms [Unknown]
  - Anxiety [Unknown]
  - Stress [Unknown]
